FAERS Safety Report 22050965 (Version 1)
Quarter: 2023Q1

REPORT INFORMATION
  Report Type: Spontaneous
  Country: US (occurrence: None)
  Receive Date: 20230301
  Receipt Date: 20230301
  Transmission Date: 20230417
  Serious: No
  Sender: FDA-Public Use
  Company Number: None

PATIENT
  Age: 76 Year
  Sex: Female
  Weight: 70.31 kg

DRUGS (8)
  1. MINOCYCLINE [Suspect]
     Active Substance: MINOCYCLINE HYDROCHLORIDE
     Indication: Rosacea
     Dosage: FREQUENCY : DAILY;?
     Route: 048
     Dates: start: 20230126, end: 20230128
  2. LEVOTHYROXINE [Concomitant]
     Active Substance: LEVOTHYROXINE
  3. PRAVASTATIN [Concomitant]
     Active Substance: PRAVASTATIN
  4. CALCIUM [Concomitant]
     Active Substance: CALCIUM
  5. WOMEN^S ONE-A-DAY MULTIVIT. [Concomitant]
  6. VIT. D3 [Concomitant]
  7. PROBIOTICS NOS [Concomitant]
     Active Substance: PROBIOTICS NOS
  8. VISION VIT. [Concomitant]

REACTIONS (7)
  - Rhinorrhoea [None]
  - Chills [None]
  - Tremor [None]
  - Back pain [None]
  - Headache [None]
  - Therapy cessation [None]
  - Therapy interrupted [None]

NARRATIVE: CASE EVENT DATE: 20230126
